FAERS Safety Report 20784326 (Version 1)
Quarter: 2022Q2

REPORT INFORMATION
  Report Type: Spontaneous
  Country: CN (occurrence: None)
  Receive Date: 20220504
  Receipt Date: 20220504
  Transmission Date: 20220720
  Serious: Yes (Other)
  Sender: FDA-Public Use
  Company Number: 2022A165038

PATIENT
  Age: 50 Year
  Sex: Female

DRUGS (4)
  1. GEFITINIB [Suspect]
     Active Substance: GEFITINIB
     Indication: Lung adenocarcinoma
     Route: 048
  2. OSIMERTINIB [Suspect]
     Active Substance: OSIMERTINIB
     Route: 048
  3. CISPLATIN [Concomitant]
     Active Substance: CISPLATIN
     Indication: Chemotherapy
  4. ETOPOSIDE [Concomitant]
     Active Substance: ETOPOSIDE
     Indication: Chemotherapy

REACTIONS (9)
  - Malignant neoplasm progression [Unknown]
  - EGFR gene mutation [Unknown]
  - Drug resistance [Unknown]
  - Metastases to urinary tract [Unknown]
  - Malignant transformation [Unknown]
  - Metastases to liver [Unknown]
  - Metastases to bone [Unknown]
  - Small cell lung cancer [Unknown]
  - Metastases to lung [Unknown]
